FAERS Safety Report 8161409-6 (Version None)
Quarter: 2012Q1

REPORT INFORMATION
  Report Type: 
  Country: None (occurrence: None)
  Receive Date: 20120224
  Receipt Date: 20090618
  Transmission Date: 20120608
  Serious: Yes (Other)
  Sender: FDA-Public Use
  Company Number: US-UCBSA-8048077

PATIENT
  Sex: Female
  Weight: 7.13 kg

DRUGS (5)
  1. FOLIC ACID [Concomitant]
     Indication: PREGNANCY
     Dosage: DOSE FREQ.: DAILY
     Route: 064
     Dates: start: 20080211, end: 20081104
  2. MULTI-VITAMINS [Concomitant]
     Indication: PREGNANCY
     Dosage: DOSE FREQ.: DAILY
     Route: 064
     Dates: start: 20080211, end: 20081104
  3. LEXAPRO [Concomitant]
     Indication: DEPRESSION
     Dosage: DOSE FREQ.: DAILY
     Route: 064
     Dates: start: 20080211, end: 20081104
  4. KEPPRA [Suspect]
     Indication: EPILEPSY
     Dosage: DOSE FREQ.: DAILY
     Route: 064
  5. LAMICTAL [Concomitant]
     Indication: EPILEPSY
     Dosage: DOSE FREQ.: DAILY
     Route: 064
     Dates: start: 20080211, end: 20081104

REACTIONS (2)
  - MUSCULAR WEAKNESS [None]
  - FOETAL EXPOSURE DURING PREGNANCY [None]
